FAERS Safety Report 7638547-7 (Version None)
Quarter: 2011Q3

REPORT INFORMATION
  Report Type: 
  Country: None (occurrence: None)
  Receive Date: 20110727
  Receipt Date: 20110720
  Transmission Date: 20111222
  Serious: Yes (Death, Other)
  Sender: FDA-Public Use
  Company Number: PHHY2011JP17425

PATIENT
  Sex: Female

DRUGS (8)
  1. SORAFENIB TOSILATE [Concomitant]
     Indication: METASTATIC RENAL CELL CARCINOMA
     Dosage: 400 MG, UNK
     Route: 048
     Dates: start: 20090508, end: 20090515
  2. AFINITOR [Suspect]
     Dosage: 5 MG, DAILY
     Route: 048
     Dates: start: 20100702, end: 20100806
  3. AFINITOR [Suspect]
     Dosage: 10 MG DAILY
     Route: 048
     Dates: start: 20100807, end: 20101209
  4. SUNITINIB MALATE [Concomitant]
     Dosage: 25 MG, UNK
     Route: 048
  5. AFINITOR [Suspect]
     Indication: METASTATIC RENAL CELL CARCINOMA
     Dosage: 10 MG, DAILY
     Route: 048
     Dates: start: 20100608, end: 20100701
  6. SUNITINIB MALATE [Concomitant]
     Indication: METASTATIC RENAL CELL CARCINOMA
     Dosage: 50 MG, UNK
     Route: 048
     Dates: start: 20100325, end: 20100514
  7. IFN ALPHA [Concomitant]
     Indication: METASTATIC RENAL CELL CARCINOMA
     Dosage: 5000000 DF, UNK
     Route: 013
     Dates: start: 20090623, end: 20091211
  8. PROLEUKIN [Concomitant]
     Indication: METASTATIC RENAL CELL CARCINOMA
     Dosage: 350000 DF, UNK
     Route: 042
     Dates: start: 20090622, end: 20091211

REACTIONS (8)
  - LYMPHOCYTE COUNT DECREASED [None]
  - NEOPLASM MALIGNANT [None]
  - C-REACTIVE PROTEIN INCREASED [None]
  - ANAEMIA [None]
  - BLOOD ALKALINE PHOSPHATASE INCREASED [None]
  - BLOOD LACTATE DEHYDROGENASE INCREASED [None]
  - HAEMOGLOBIN DECREASED [None]
  - BLOOD ALBUMIN DECREASED [None]
